FAERS Safety Report 11048195 (Version 1)
Quarter: 2015Q2

REPORT INFORMATION
  Report Type: Spontaneous
  Country: US (occurrence: US)
  Receive Date: 20150420
  Receipt Date: 20150420
  Transmission Date: 20150821
  Serious: No
  Sender: FDA-Public Use
  Company Number: US-ABBVIE-14P-163-1243772-00

PATIENT
  Age: 11 Year
  Sex: Female

DRUGS (2)
  1. LUPRON DEPOT-PED [Suspect]
     Active Substance: LEUPROLIDE ACETATE
     Indication: OFF LABEL USE
  2. LUPRON DEPOT-PED [Suspect]
     Active Substance: LEUPROLIDE ACETATE
     Indication: GROWTH HORMONE DEFICIENCY

REACTIONS (11)
  - Concussion [Unknown]
  - Head injury [Unknown]
  - Pain in extremity [Unknown]
  - Off label use [Unknown]
  - Speech disorder [Unknown]
  - Tearfulness [Unknown]
  - Headache [Recovered/Resolved]
  - Visual impairment [Unknown]
  - Mood altered [Unknown]
  - Cough [Unknown]
  - Dizziness [Unknown]
